FAERS Safety Report 24722599 (Version 1)
Quarter: 2024Q4

REPORT INFORMATION
  Report Type: Spontaneous
  Country: BG (occurrence: BG)
  Receive Date: 20241211
  Receipt Date: 20241211
  Transmission Date: 20250114
  Serious: Yes (Hospitalization, Other)
  Sender: ROCHE
  Company Number: None

PATIENT
  Age: 77 Year
  Sex: Female

DRUGS (14)
  1. RITUXIMAB [Suspect]
     Active Substance: RITUXIMAB
     Indication: Diffuse large B-cell lymphoma
     Dosage: 4 COURSES R-CNOP (RITUXIMAB; ENDOXANE; MITOXANTHRONE; VINCRISTINE; PREDNISOLON)
     Route: 065
     Dates: start: 202010, end: 202209
  2. RITUXIMAB [Suspect]
     Active Substance: RITUXIMAB
     Dosage: 4 COURSES R-CVP (RITUXIMAB; ENDOXANE; VINCRISTINE; PREDNISOLON)
     Route: 065
     Dates: start: 202010, end: 202209
  3. RITUXIMAB [Suspect]
     Active Substance: RITUXIMAB
     Dosage: ^R-BENDAMUSTINE^ (RITUXIMAB;BENDAMUSTINE)
     Route: 065
     Dates: start: 202010, end: 202209
  4. RITUXIMAB [Suspect]
     Active Substance: RITUXIMAB
     Dosage: 3 COURSES ^R-GEMCITABIN^
     Route: 065
     Dates: start: 202010, end: 202209
  5. RITUXIMAB [Suspect]
     Active Substance: RITUXIMAB
     Dosage: ^R-BENDAMUSTINE + POLATUZUMAB^ (RITUXIMAB; POLATUZUMAB; BENDAMUSTINE)
     Route: 065
     Dates: start: 202010, end: 202209
  6. POLATUZUMAB VEDOTIN [Suspect]
     Active Substance: POLATUZUMAB VEDOTIN
     Indication: Diffuse large B-cell lymphoma
     Dosage: ^R-BENDAMUSTINE + POLATUZUMAB^ (RITUXIMAB; POLATUZUMAB; BENDAMUSTINE)
     Route: 065
     Dates: start: 202010, end: 202209
  7. MITOXANTRONE [Suspect]
     Active Substance: MITOXANTRONE HYDROCHLORIDE
     Indication: Diffuse large B-cell lymphoma
     Dosage: (4 COURSES R-CNOP (RITUXIMAB; ENDOXANE; MITOXANTHRONE; VINCRISTINE; PREDNISOLON)
     Route: 065
     Dates: start: 202010, end: 202209
  8. PREDNISOLONE [Suspect]
     Active Substance: PREDNISOLONE
     Indication: Diffuse large B-cell lymphoma
     Dosage: (4 COURSES R-CNOP (RITUXIMAB; ENDOXANE; MITOXANTHRONE; VINCRISTINE; PREDNISOLON)
     Route: 065
     Dates: start: 202010, end: 202209
  9. PREDNISOLONE [Suspect]
     Active Substance: PREDNISOLONE
     Dosage: 4 COURSES R-CVP (RITUXIMAB; ENDOXANE; VINCRISTINE; PREDNISOLON)
     Route: 065
     Dates: start: 202010, end: 202209
  10. VINCRISTINE [Suspect]
     Active Substance: VINCRISTINE
     Indication: Diffuse large B-cell lymphoma
     Dosage: (4 COURSES R-CNOP (RITUXIMAB; ENDOXANE; MITOXANTHRONE; VINCRISTINE; PREDNISOLON)
     Route: 065
     Dates: start: 202010, end: 202209
  11. VINCRISTINE [Suspect]
     Active Substance: VINCRISTINE
     Dosage: 4 COURSES R-CVP (RITUXIMAB; ENDOXANE; VINCRISTINE; PREDNISOLON)
     Route: 065
     Dates: start: 202010, end: 202209
  12. BENDAMUSTINE [Suspect]
     Active Substance: BENDAMUSTINE
     Indication: Diffuse large B-cell lymphoma
     Dosage: ^R-BENDAMUSTINE^ (RITUXIMAB; BENDAMUSTINE)
     Route: 065
     Dates: start: 202010, end: 202209
  13. BENDAMUSTINE [Suspect]
     Active Substance: BENDAMUSTINE
     Dosage: ^R-BENDAMUSTINE + POLATUZUMAB^ (RITUXIMAB; POLATUZUMAB; BENDAMUSTINE)
     Route: 065
     Dates: start: 202010, end: 202209
  14. GEMCITABINE [Suspect]
     Active Substance: GEMCITABINE
     Indication: Diffuse large B-cell lymphoma
     Dosage: 3 COURSES ^R-GEMCITABIN^
     Route: 065
     Dates: start: 202010, end: 202209

REACTIONS (4)
  - COVID-19 [Unknown]
  - Cytopenia [Unknown]
  - Respiratory tract infection [Unknown]
  - Off label use [Unknown]
